FAERS Safety Report 8580494-0 (Version None)
Quarter: 2012Q3

REPORT INFORMATION
  Report Type: 
  Country: None (occurrence: None)
  Receive Date: 20120808
  Receipt Date: 20120801
  Transmission Date: 20120928
  Serious: Yes (Hospitalization, Other)
  Sender: FDA-Public Use
  Company Number: JP-VERTEX PHARMACEUTICALS INC.-AE-2012-009875

PATIENT
  Age: 57 Year
  Sex: Female

DRUGS (16)
  1. TELAVIC [Suspect]
     Indication: HEPATITIS C
     Route: 048
     Dates: start: 20120428, end: 20120616
  2. URSO 250 [Concomitant]
     Route: 048
  3. PEGINTERFERON ALFA-2B [Concomitant]
     Route: 058
     Dates: end: 20120614
  4. RIBAVIRIN [Concomitant]
     Route: 048
     Dates: start: 20120428, end: 20120614
  5. LAENNEC [Concomitant]
     Route: 058
  6. TELAVIC [Suspect]
     Route: 048
     Dates: start: 20120617, end: 20120721
  7. STRONGER MINOPHAGEN [Concomitant]
  8. TALION [Concomitant]
     Route: 048
  9. PEGINTERFERON ALFA-2B [Concomitant]
     Route: 058
     Dates: start: 20120505, end: 20120511
  10. PEGINTERFERON ALFA-2B [Concomitant]
     Route: 058
     Dates: start: 20120615, end: 20120621
  11. PEGINTERFERON ALFA-2B [Concomitant]
     Route: 058
     Dates: start: 20120622
  12. RIBAVIRIN [Concomitant]
     Route: 048
     Dates: start: 20120615
  13. PEGINTERFERON ALFA-2B [Concomitant]
     Route: 058
     Dates: start: 20120601
  14. RABEPRAZOLE SODIUM [Concomitant]
     Route: 048
  15. PEGINTERFERON ALFA-2B [Concomitant]
     Indication: HEPATITIS C
     Route: 058
     Dates: start: 20120428, end: 20120428
  16. PEGINTERFERON ALFA-2B [Concomitant]
     Route: 058
     Dates: start: 20120518, end: 20120525

REACTIONS (3)
  - PANCYTOPENIA [None]
  - WHITE BLOOD CELL COUNT DECREASED [None]
  - ENTEROCOLITIS [None]
